FAERS Safety Report 20204363 (Version 3)
Quarter: 2022Q4

REPORT INFORMATION
  Report Type: Report from Study
  Country: US (occurrence: US)
  Receive Date: 20211220
  Receipt Date: 20221109
  Transmission Date: 20230112
  Serious: Yes (Hospitalization, Other)
  Sender: FDA-Public Use
  Company Number: US-TAKEDA-US201920390

PATIENT
  Sex: Male

DRUGS (2)
  1. HUMAN IMMUNOGLOBULIN G [Suspect]
     Active Substance: HUMAN IMMUNOGLOBULIN G
     Indication: Primary immunodeficiency syndrome
     Dosage: UNK, 1/WEEK
     Route: 065
  2. HUMAN IMMUNOGLOBULIN G [Suspect]
     Active Substance: HUMAN IMMUNOGLOBULIN G
     Dosage: UNK, Q2WEEKS
     Route: 065

REACTIONS (7)
  - Road traffic accident [Unknown]
  - Wrist fracture [Unknown]
  - Lower limb fracture [Unknown]
  - COVID-19 pneumonia [Unknown]
  - Insurance issue [Unknown]
  - Intentional product use issue [Unknown]
  - Intentional product misuse [Unknown]
